FAERS Safety Report 18431506 (Version 2)
Quarter: 2020Q4

REPORT INFORMATION
  Report Type: Spontaneous
  Country: GR (occurrence: GR)
  Receive Date: 20201027
  Receipt Date: 20201119
  Transmission Date: 20210114
  Serious: Yes (Hospitalization)
  Sender: FDA-Public Use
  Company Number: GR-ROCHE-2689405

PATIENT
  Sex: Female
  Weight: 72 kg

DRUGS (6)
  1. ROACTEMRA [Suspect]
     Active Substance: TOCILIZUMAB
     Route: 058
     Dates: start: 20200130, end: 202007
  2. ROACTEMRA [Suspect]
     Active Substance: TOCILIZUMAB
     Indication: RHEUMATOID ARTHRITIS
     Route: 058
     Dates: start: 20191118
  3. PREZOLON [Concomitant]
     Active Substance: PREDNISOLONE
     Dosage: 7,5MGR/D
     Route: 048
  4. TIOTROPIUM [Concomitant]
     Active Substance: TIOTROPIUM
     Dates: start: 202001
  5. ARAVA [Concomitant]
     Active Substance: LEFLUNOMIDE
     Dosage: 10MGR/D
     Route: 048
     Dates: start: 20200623
  6. ROSUVASTATIN. [Concomitant]
     Active Substance: ROSUVASTATIN

REACTIONS (4)
  - Presyncope [Unknown]
  - Asthma [Recovered/Resolved]
  - Fibrin D dimer increased [Recovered/Resolved]
  - Dyspnoea [Unknown]

NARRATIVE: CASE EVENT DATE: 20200703
